FAERS Safety Report 5066121-8 (Version None)
Quarter: 2006Q3

REPORT INFORMATION
  Report Type: 
  Country: None (occurrence: None)
  Receive Date: 20060725
  Receipt Date: 20060718
  Transmission Date: 20061208
  Serious: Yes (Hospitalization, Other)
  Sender: FDA-Public Use
  Company Number: 200612173GDS

PATIENT
  Age: 76 Year
  Sex: Male

DRUGS (2)
  1. LEVITRA [Suspect]
     Indication: ERECTILE DYSFUNCTION
     Dosage: PRN, ORAL
     Route: 048
  2. TELMISARTAN [Concomitant]

REACTIONS (2)
  - CLONIC CONVULSION [None]
  - PARTIAL SEIZURES [None]
